FAERS Safety Report 5548750-8 (Version None)
Quarter: 2007Q4

REPORT INFORMATION
  Report Type: 
  Country: None (occurrence: None)
  Receive Date: 20071206
  Receipt Date: 20071122
  Transmission Date: 20080405
  Serious: Yes (Hospitalization)
  Sender: FDA-Public Use
  Company Number: 2007S1012416

PATIENT
  Age: 86 Year
  Sex: Female

DRUGS (6)
  1. LISINOPRIL [Suspect]
     Indication: BLOOD PRESSURE INCREASED
     Dosage: 20 MG; ORAL
     Route: 048
     Dates: end: 20071103
  2. SPIRONOLACTONE [Suspect]
     Indication: LEFT VENTRICULAR FAILURE
     Dosage: 25 MG; ORAL
     Route: 048
     Dates: end: 20071103
  3. FERROUS SULFATE TAB [Concomitant]
  4. PERSANTINE [Concomitant]
  5. PROCHLORPERAZINE [Concomitant]
  6. RANITIDINE HCL [Concomitant]

REACTIONS (2)
  - HYPERKALAEMIA [None]
  - RENAL FAILURE ACUTE [None]
